FAERS Safety Report 10289669 (Version 2)
Quarter: 2016Q3

REPORT INFORMATION
  Report Type: Report from Study
  Country: IT (occurrence: IT)
  Receive Date: 20140710
  Receipt Date: 20160801
  Transmission Date: 20161109
  Serious: Yes (Other)
  Sender: FDA-Public Use
  Company Number: IT-ROCHE-1430230

PATIENT
  Age: 22 Year
  Sex: Female

DRUGS (4)
  1. TRETINOIN. [Suspect]
     Active Substance: TRETINOIN
     Indication: ACUTE PROMYELOCYTIC LEUKAEMIA
     Dosage: INDUCTION THERAPY
     Route: 048
  2. TRETINOIN. [Suspect]
     Active Substance: TRETINOIN
     Dosage: CONSOLIDATION THERAPY
     Route: 048
  3. ARSENIC TRIOXIDE [Suspect]
     Active Substance: ARSENIC TRIOXIDE
     Indication: ACUTE PROMYELOCYTIC LEUKAEMIA
     Dosage: INDUCTION THERAPY
     Route: 042
  4. ARSENIC TRIOXIDE [Suspect]
     Active Substance: ARSENIC TRIOXIDE
     Dosage: DAY 1 TO 5 PER WEEK, CONSOLIDATION THERAPY
     Route: 042

REACTIONS (3)
  - Leukocytosis [Unknown]
  - Maternal exposure during pregnancy [Unknown]
  - Retinal haemorrhage [Unknown]
